FAERS Safety Report 6080374-9 (Version None)
Quarter: 2009Q1

REPORT INFORMATION
  Report Type: 
  Country: None (occurrence: None)
  Receive Date: 20090217
  Receipt Date: 20090206
  Transmission Date: 20090719
  Serious: Yes (Hospitalization, Disabling, Other)
  Sender: FDA-Public Use
  Company Number: US-MERCK-0808USA00324

PATIENT
  Age: 54 Year
  Sex: Female

DRUGS (12)
  1. FOSAMAX [Suspect]
     Indication: OSTEOPOROSIS
     Route: 048
     Dates: start: 19980801, end: 20051101
  2. FOSAMAX [Suspect]
     Route: 048
     Dates: start: 19970118, end: 20051101
  3. [THERAPY UNSPECIFIED] [Concomitant]
     Indication: BLOOD CHOLESTEROL INCREASED
     Route: 065
     Dates: start: 19970603
  4. CORTICOSTEROIDS (UNSPECIFIED) [Concomitant]
     Route: 065
     Dates: start: 19850101, end: 20060201
  5. HORMONES (UNSPECIFIED) [Concomitant]
     Route: 065
     Dates: start: 19971101
  6. SYNTHROID [Concomitant]
     Indication: HYPERTHYROIDISM
     Route: 065
     Dates: start: 19970509
  7. FUROSEMIDE [Concomitant]
     Indication: FLUID RETENTION
     Route: 065
     Dates: start: 19980509
  8. ULTRAM [Concomitant]
     Indication: PAIN
     Route: 065
     Dates: start: 19850101
  9. VICODIN [Concomitant]
     Indication: PAIN
     Route: 065
     Dates: start: 19850101
  10. FLEXERIL [Concomitant]
     Indication: PAIN
     Route: 065
     Dates: start: 19850101
  11. PAXIL [Concomitant]
     Indication: ANXIETY
     Route: 065
     Dates: start: 19970118
  12. PAXIL [Concomitant]
     Indication: ANALGESIA
     Route: 065
     Dates: start: 19970118

REACTIONS (14)
  - ADVERSE EVENT [None]
  - ANXIETY [None]
  - BONE DISORDER [None]
  - CROHN'S DISEASE [None]
  - HYPERTENSION [None]
  - IMPAIRED HEALING [None]
  - INSOMNIA [None]
  - INTERVERTEBRAL DISC DEGENERATION [None]
  - IRRITABLE BOWEL SYNDROME [None]
  - OSTEOARTHRITIS [None]
  - OSTEONECROSIS [None]
  - RESORPTION BONE INCREASED [None]
  - SCOLIOSIS [None]
  - SPONDYLITIS [None]
